FAERS Safety Report 4411364-7 (Version None)
Quarter: 2004Q3

REPORT INFORMATION
  Report Type: 
  Country: None (occurrence: None)
  Receive Date: 20040729
  Receipt Date: 20040726
  Transmission Date: 20050211
  Serious: Yes (Life-Threatening, Hospitalization)
  Sender: FDA-Public Use
  Company Number: DE-MERCK-0407DEU00193

PATIENT
  Age: 55 Year
  Sex: Female
  Weight: 104 kg

DRUGS (2)
  1. BUDESONIDE AND FORMOTEROL FUMARATE [Concomitant]
     Indication: ASTHMA
     Route: 055
     Dates: start: 20020101
  2. SINGULAIR [Suspect]
     Indication: ASTHMA
     Route: 048
     Dates: start: 20030501, end: 20040401

REACTIONS (1)
  - ALLERGIC GRANULOMATOUS ANGIITIS [None]
